FAERS Safety Report 15213745 (Version 3)
Quarter: 2018Q4

REPORT INFORMATION
  Report Type: Spontaneous
  Country: US (occurrence: US)
  Receive Date: 20180730
  Receipt Date: 20181010
  Transmission Date: 20190204
  Serious: Yes (Other)
  Sender: FDA-Public Use
  Company Number: US-SA-2017SA256179

PATIENT
  Age: 57 Year
  Sex: Female
  Weight: 62 kg

DRUGS (16)
  1. NEOSAR [Concomitant]
     Active Substance: CYCLOPHOSPHAMIDE
     Dosage: UNK UNK, UNK
  2. SYNTHROID [Concomitant]
     Active Substance: LEVOTHYROXINE SODIUM
  3. ALDACTONE [Concomitant]
     Active Substance: SPIRONOLACTONE
  4. COZAAR [Concomitant]
     Active Substance: LOSARTAN POTASSIUM
  5. SINGULAIR [Concomitant]
     Active Substance: MONTELUKAST SODIUM
  6. LETROZOLE. [Concomitant]
     Active Substance: LETROZOLE
  7. LYRICA [Concomitant]
     Active Substance: PREGABALIN
  8. TAXOTERE [Suspect]
     Active Substance: DOCETAXEL
     Indication: BREAST CANCER FEMALE
     Dosage: 134 MG, Q3W
     Route: 042
     Dates: start: 20120224, end: 20120224
  9. NEULASTA [Concomitant]
     Active Substance: PEGFILGRASTIM
     Indication: ALOPECIA
  10. ARIMIDEX [Concomitant]
     Active Substance: ANASTROZOLE
  11. CELEBREX [Concomitant]
     Active Substance: CELECOXIB
  12. ZOFRAN [ONDANSETRON HYDROCHLORIDE] [Concomitant]
     Indication: ALOPECIA
     Dosage: UNK UNK, UNK
  13. TOPROL XL [Concomitant]
     Active Substance: METOPROLOL SUCCINATE
  14. TAXOTERE [Suspect]
     Active Substance: DOCETAXEL
     Dosage: 134 MG, Q3W
     Route: 042
     Dates: start: 20120608, end: 20120608
  15. ADRIAMYCIN [Concomitant]
     Active Substance: DOXORUBICIN HYDROCHLORIDE
     Dosage: UNK UNK, UNK
  16. DECADRON [DEXAMETHASONE] [Concomitant]
     Indication: ALOPECIA
     Dosage: UNK UNK, UNK

REACTIONS (2)
  - Alopecia [Not Recovered/Not Resolved]
  - Psychological trauma [Unknown]

NARRATIVE: CASE EVENT DATE: 20120701
